FAERS Safety Report 7751864-5 (Version None)
Quarter: 2011Q3

REPORT INFORMATION
  Report Type: 
  Country: None (occurrence: None)
  Receive Date: 20110914
  Receipt Date: 20110914
  Transmission Date: 20111222
  Serious: Yes (Hospitalization)
  Sender: FDA-Public Use
  Company Number: None

PATIENT
  Age: 65 Year
  Sex: Male
  Weight: 66.1 kg

DRUGS (1)
  1. PIPERACILLIN AND TAZOBACTAM [Suspect]
     Dosage: 4.5 MG QID IV
     Route: 042
     Dates: start: 20110726, end: 20110726

REACTIONS (3)
  - URTICARIA [None]
  - DYSPNOEA [None]
  - CONDITION AGGRAVATED [None]
